FAERS Safety Report 4471132-7 (Version None)
Quarter: 2004Q4

REPORT INFORMATION
  Report Type: 
  Country: None (occurrence: None)
  Receive Date: 20041005
  Receipt Date: 20040923
  Transmission Date: 20050328
  Serious: No
  Sender: FDA-Public Use
  Company Number: A0527162A

PATIENT

DRUGS (1)
  1. NICORETTE [Suspect]
     Dosage: TRANSBUCCAL
     Route: 002

REACTIONS (1)
  - GASTROINTESTINAL ISCHAEMIA [None]
